FAERS Safety Report 9664229 (Version 2)
Quarter: 2013Q4

REPORT INFORMATION
  Report Type: Spontaneous
  Country: CA (occurrence: CA)
  Receive Date: 20131101
  Receipt Date: 20131101
  Transmission Date: 20140711
  Serious: Yes (Other)
  Sender: FDA-Public Use
  Company Number: CA-SA-FABR-1002944

PATIENT
  Age: 63 Year
  Sex: Female
  Weight: 70 kg

DRUGS (12)
  1. FABRAZYME [Suspect]
     Indication: FABRY^S DISEASE
     Dosage: 70 MG, Q2W
     Route: 042
     Dates: start: 20070912
  2. ERGOCALCIFEROL [Concomitant]
  3. WARFARIN [Concomitant]
     Indication: PROPHYLAXIS
     Dosage: STROKE PREVENTION (ATRIAL FIBRILATION)
     Route: 048
     Dates: start: 20101029
  4. CRESTOR [Concomitant]
     Route: 048
  5. ATACAND [Concomitant]
     Route: 048
     Dates: start: 20100923
  6. DILTIAZEM [Concomitant]
     Route: 048
     Dates: start: 20100923
  7. DIGOXIN [Concomitant]
     Route: 048
     Dates: start: 20090608
  8. FUROSEMIDE [Concomitant]
     Indication: OEDEMA
     Route: 048
     Dates: start: 20121006
  9. VITAMIN C [Concomitant]
     Route: 048
  10. VITAMIN D3 [Concomitant]
     Route: 048
  11. ACETYLSALICYLIC ACID [Concomitant]
     Route: 048
  12. OMEGA 3 [Concomitant]
     Dates: start: 20110614

REACTIONS (1)
  - Breast cancer [Recovered/Resolved]
